FAERS Safety Report 21540611 (Version 1)
Quarter: 2022Q4

REPORT INFORMATION
  Report Type: Spontaneous
  Country: US (occurrence: US)
  Receive Date: 20221102
  Receipt Date: 20221102
  Transmission Date: 20230112
  Serious: Yes (Other)
  Sender: FDA-Public Use
  Company Number: US-Accord-276302

PATIENT
  Sex: Male
  Weight: 77.11 kg

DRUGS (1)
  1. HYDROXYCHLOROQUINE SULFATE [Suspect]
     Active Substance: HYDROXYCHLOROQUINE SULFATE
     Indication: Osteoarthritis
     Dosage: DOSE: 200MG, TWICE DAILY
     Route: 048
     Dates: start: 202205, end: 202207

REACTIONS (6)
  - Drug ineffective [Unknown]
  - Blood glucose decreased [Recovered/Resolved]
  - Deafness [Unknown]
  - Weight decreased [Unknown]
  - Off label use [Unknown]
  - Sunburn [Unknown]
